FAERS Safety Report 11490790 (Version 3)
Quarter: 2017Q1

REPORT INFORMATION
  Report Type: Spontaneous
  Country: US (occurrence: US)
  Receive Date: 20150910
  Receipt Date: 20170331
  Transmission Date: 20170428
  Serious: Yes (Hospitalization, Other)
  Sender: FDA-Public Use
  Company Number: US-ELI_LILLY_AND_COMPANY-US201509001441

PATIENT
  Age: 39 Year
  Sex: Male

DRUGS (2)
  1. CYMBALTA [Suspect]
     Active Substance: DULOXETINE HYDROCHLORIDE
     Indication: PAIN
     Dosage: 30 MG, EACH EVENING
     Route: 065
  2. CYMBALTA [Suspect]
     Active Substance: DULOXETINE HYDROCHLORIDE
     Indication: DEPRESSION

REACTIONS (19)
  - Abdominal pain [Unknown]
  - Paraesthesia [Unknown]
  - Tinnitus [Unknown]
  - Lethargy [Unknown]
  - Affect lability [Unknown]
  - Headache [Unknown]
  - Agitation [Unknown]
  - Irritability [Unknown]
  - Nausea [Unknown]
  - Dysphoria [Unknown]
  - Diarrhoea [Unknown]
  - Drug withdrawal syndrome [Unknown]
  - Nightmare [Unknown]
  - Sleep disorder [Unknown]
  - Fatigue [Unknown]
  - Vertigo [Unknown]
  - Dizziness [Unknown]
  - Insomnia [Unknown]
  - Anxiety [Unknown]

NARRATIVE: CASE EVENT DATE: 20140727
